FAERS Safety Report 11232848 (Version 1)
Quarter: 2015Q3

REPORT INFORMATION
  Report Type: Spontaneous
  Country: US (occurrence: US)
  Receive Date: 20150701
  Receipt Date: 20150701
  Transmission Date: 20151125
  Serious: No
  Sender: FDA-Public Use
  Company Number: ALCN2015US004125

PATIENT
  Sex: Female

DRUGS (2)
  1. PROLENSA [Concomitant]
     Active Substance: BROMFENAC SODIUM
     Indication: POSTOPERATIVE CARE
     Dosage: 1 GTT, QD
     Route: 047
  2. DUREZOL [Suspect]
     Active Substance: DIFLUPREDNATE
     Indication: POSTOPERATIVE CARE
     Dosage: 1 GTT, QD
     Route: 047
     Dates: start: 20150520, end: 20150521

REACTIONS (3)
  - Rash papular [Recovered/Resolved]
  - Swollen tongue [Recovered/Resolved]
  - Pruritus [Recovered/Resolved]
